FAERS Safety Report 8736101 (Version 2)
Quarter: 2014Q1

REPORT INFORMATION
  Report Type: Spontaneous
  Country: US (occurrence: US)
  Receive Date: 20120822
  Receipt Date: 20140321
  Transmission Date: 20141002
  Serious: Yes (Hospitalization, Other)
  Sender: FDA-Public Use
  Company Number: US-ELI_LILLY_AND_COMPANY-US201208003788

PATIENT
  Sex: Male

DRUGS (17)
  1. HUMULIN REGULAR [Suspect]
     Indication: TYPE 2 DIABETES MELLITUS
     Dosage: UNK UNK, TID
     Route: 065
     Dates: start: 2009
  2. HUMULIN REGULAR [Suspect]
     Dosage: 36 U, TID
     Route: 065
  3. HUMULIN REGULAR [Suspect]
     Dosage: 150 U, UNKNOWN
     Route: 065
  4. HUMALOG LISPRO [Suspect]
     Indication: TYPE 2 DIABETES MELLITUS
     Route: 065
  5. HUMULIN REGULAR [Suspect]
     Indication: TYPE 2 DIABETES MELLITUS
     Dosage: 50 U, PRN
     Route: 065
  6. HUMULIN 30% REGULAR, 70% NPH [Suspect]
     Indication: TYPE 2 DIABETES MELLITUS
     Dosage: UNK, TID
     Route: 065
  7. GLYBURIDE [Concomitant]
     Dosage: 10 MG, UNKNOWN
  8. LOVAZA [Concomitant]
  9. COREG [Concomitant]
     Route: 065
  10. DIOVAN [Concomitant]
  11. XARELTO [Concomitant]
  12. LIPITOR [Concomitant]
  13. TRICOR                             /00499301/ [Concomitant]
  14. SOMA [Concomitant]
     Indication: PAIN
     Route: 065
  15. ASPIRIN [Concomitant]
     Dosage: 81 MG, QD
  16. LASIX                              /00032601/ [Concomitant]
  17. METOLAZONE [Concomitant]

REACTIONS (17)
  - Blood glucose increased [Unknown]
  - Blindness [Recovering/Resolving]
  - Cardiac disorder [Unknown]
  - Weight increased [Unknown]
  - Cardiac failure [Unknown]
  - Incorrect dose administered [Unknown]
  - Blood glucose increased [Unknown]
  - Blood glucose decreased [Recovered/Resolved]
  - Feeling abnormal [Unknown]
  - Vision blurred [Recovering/Resolving]
  - Heart rate increased [Recovering/Resolving]
  - Blood pressure increased [Unknown]
  - Sleep apnoea syndrome [Unknown]
  - Dyspnoea [Unknown]
  - Blood glucose increased [Unknown]
  - Drug ineffective [Unknown]
  - Medication error [Recovered/Resolved]
